FAERS Safety Report 4621463-2 (Version None)
Quarter: 2005Q2

REPORT INFORMATION
  Report Type: 
  Country: None (occurrence: None)
  Receive Date: 20050317
  Receipt Date: 20040318
  Transmission Date: 20051028
  Serious: Yes (Other)
  Sender: FDA-Public Use
  Company Number: PHEH2003US11601

PATIENT
  Age: 57 Year
  Sex: Female

DRUGS (8)
  1. TRILEPTAL [Suspect]
     Indication: NEUROPATHY
     Dosage: 150 MG BID ORAL
     Route: 048
     Dates: start: 20031009, end: 20031118
  2. DURAGESIC (FENTANYL) [Concomitant]
  3. NEURONTIN [Concomitant]
  4. GABAPENTIN [Concomitant]
  5. ATENOLOL [Concomitant]
  6. AMBIEN [Concomitant]
  7. OXYCONTIN [Concomitant]
  8. IBUPROFEN [Concomitant]

REACTIONS (4)
  - FLUID RETENTION [None]
  - HYPONATRAEMIA [None]
  - NAUSEA [None]
  - OEDEMA [None]
